FAERS Safety Report 8021802-9 (Version None)
Quarter: 2012Q1

REPORT INFORMATION
  Report Type: 
  Country: None (occurrence: None)
  Receive Date: 20120104
  Receipt Date: 20120103
  Transmission Date: 20120608
  Serious: Yes (Other)
  Sender: FDA-Public Use
  Company Number: IL-BAYER-2012-000638

PATIENT
  Age: 21 Year
  Sex: Female

DRUGS (2)
  1. BETASERON [Suspect]
     Indication: MULTIPLE SCLEROSIS
     Dosage: 0.5 ML, UNK
     Dates: start: 20111201
  2. BETASERON [Suspect]
     Dosage: 0.25 ML
     Dates: start: 20120102

REACTIONS (3)
  - LOSS OF CONSCIOUSNESS [None]
  - SYNCOPE [None]
  - FALL [None]
